FAERS Safety Report 19295753 (Version 1)
Quarter: 2021Q2

REPORT INFORMATION
  Report Type: Spontaneous
  Country: US (occurrence: US)
  Receive Date: 20210524
  Receipt Date: 20210524
  Transmission Date: 20210717
  Serious: No
  Sender: FDA-Public Use
  Company Number: US-SA-2021SA169824

PATIENT
  Age: 22 Year
  Sex: Female

DRUGS (1)
  1. DUPIXENT [Suspect]
     Active Substance: DUPILUMAB
     Indication: ECZEMA
     Dosage: 200 MG, QOW
     Dates: start: 2020

REACTIONS (3)
  - Blood immunoglobulin G [Unknown]
  - Incorrect dose administered [Unknown]
  - Herpes virus infection [Unknown]

NARRATIVE: CASE EVENT DATE: 2020
